FAERS Safety Report 10786860 (Version 3)
Quarter: 2015Q2

REPORT INFORMATION
  Report Type: Spontaneous
  Country: US (occurrence: US)
  Receive Date: 20150211
  Receipt Date: 20150521
  Transmission Date: 20150821
  Serious: Yes (Other)
  Sender: FDA-Public Use
  Company Number: US-GLAXOSMITHKLINE-US2015GSK017542

PATIENT
  Age: 70 Year
  Sex: Male
  Weight: 68.27 kg

DRUGS (1)
  1. VOTRIENT [Suspect]
     Active Substance: PAZOPANIB HYDROCHLORIDE
     Indication: PRODUCT USED FOR UNKNOWN INDICATION
     Dosage: UNK, U
     Route: 065
     Dates: start: 201501, end: 201503

REACTIONS (12)
  - Diarrhoea [Recovered/Resolved]
  - Gallbladder disorder [Unknown]
  - Cough [Unknown]
  - Candida infection [Recovered/Resolved]
  - Deafness [Unknown]
  - Gastrointestinal fungal infection [Unknown]
  - Vomiting [Recovered/Resolved]
  - Dyspnoea [Unknown]
  - Nausea [Not Recovered/Not Resolved]
  - Cholecystitis [Recovered/Resolved]
  - Cholecystectomy [Recovered/Resolved]
  - Cholelithiasis [Recovered/Resolved]

NARRATIVE: CASE EVENT DATE: 201501
